FAERS Safety Report 4710653-6 (Version None)
Quarter: 2005Q3

REPORT INFORMATION
  Report Type: 
  Country: None (occurrence: None)
  Receive Date: 20050707
  Receipt Date: 20050620
  Transmission Date: 20060218
  Serious: Yes (Death, Hospitalization)
  Sender: FDA-Public Use
  Company Number: FR_050506493

PATIENT
  Age: 66 Year
  Sex: Male
  Weight: 70 kg

DRUGS (4)
  1. GEMZAR [Suspect]
     Indication: SQUAMOUS CELL CARCINOMA
     Dosage: 1250 MG/M2/ 2 OTHER
     Dates: start: 20050311, end: 20050401
  2. CISPLATIN [Concomitant]
  3. NEULASTA [Concomitant]
  4. NOVATREX (METHOTREXATE [Concomitant]

REACTIONS (3)
  - ANOREXIA [None]
  - INAPPROPRIATE SCHEDULE OF DRUG ADMINISTRATION [None]
  - PNEUMONITIS [None]
